FAERS Safety Report 8067760-2 (Version None)
Quarter: 2012Q1

REPORT INFORMATION
  Report Type: 
  Country: None (occurrence: None)
  Receive Date: 20120124
  Receipt Date: 20120113
  Transmission Date: 20120608
  Serious: Yes (Other)
  Sender: FDA-Public Use
  Company Number: US-BAXTER-2011BH039285

PATIENT
  Sex: Male

DRUGS (2)
  1. DIANEAL [Suspect]
     Indication: PERITONEAL DIALYSIS
     Route: 033
  2. DIANEAL [Suspect]
     Indication: RENAL FAILURE CHRONIC
     Route: 033

REACTIONS (3)
  - MALAISE [None]
  - INGUINAL HERNIA [None]
  - VOMITING [None]
